FAERS Safety Report 24013863 (Version 1)
Quarter: 2024Q2

REPORT INFORMATION
  Report Type: Spontaneous
  Country: AU (occurrence: AU)
  Receive Date: 20240626
  Receipt Date: 20240626
  Transmission Date: 20240716
  Serious: Yes (Hospitalization)
  Sender: FDA-Public Use
  Company Number: None

PATIENT
  Age: 74 Year
  Sex: Female

DRUGS (2)
  1. LETROZOLE [Suspect]
     Active Substance: LETROZOLE
     Indication: Metastatic neoplasm
     Dosage: 2.5 MG
     Route: 048
     Dates: start: 20220830, end: 20240224
  2. ALPELISIB [Suspect]
     Active Substance: ALPELISIB
     Indication: Metastatic neoplasm
     Dosage: 25 MG
     Route: 048
     Dates: start: 20220830, end: 20231208

REACTIONS (1)
  - Pericardial effusion [Recovered/Resolved]
